FAERS Safety Report 5688281-8 (Version None)
Quarter: 2008Q1

REPORT INFORMATION
  Report Type: 
  Country: None (occurrence: None)
  Receive Date: 20080331
  Receipt Date: 20080306
  Transmission Date: 20080703
  Serious: No
  Sender: FDA-Public Use
  Company Number: US-BAYER-US-2006-014287

PATIENT
  Age: 54 Year
  Sex: Male
  Weight: 84 kg

DRUGS (5)
  1. LEUKINE [Suspect]
     Indication: MALIGNANT MELANOMA STAGE IV
     Route: 058
     Dates: start: 20060301, end: 20060701
  2. LEUKINE [Suspect]
     Indication: MALIGNANT MELANOMA STAGE IV
     Route: 058
     Dates: start: 20060701
  3. AUGMENTIN '125' [Concomitant]
  4. GABOTRIL [Concomitant]
  5. CODEINE SUL TAB [Concomitant]

REACTIONS (3)
  - INJECTION SITE IRRITATION [None]
  - INJECTION SITE MASS [None]
  - INJECTION SITE PAIN [None]
